FAERS Safety Report 6342359-4 (Version None)
Quarter: 2009Q3

REPORT INFORMATION
  Report Type: 
  Country: None (occurrence: None)
  Receive Date: 20090907
  Receipt Date: 20090901
  Transmission Date: 20100115
  Serious: Yes (Death)
  Sender: FDA-Public Use
  Company Number: FR-ELI_LILLY_AND_COMPANY-FR200909000698

PATIENT

DRUGS (1)
  1. GEMZAR [Suspect]
     Indication: MYCOSIS FUNGOIDES
     Dosage: UNK, UNKNOWN
     Route: 042

REACTIONS (1)
  - SEPSIS [None]
